FAERS Safety Report 4999066-X (Version None)
Quarter: 2006Q1

REPORT INFORMATION
  Report Type: 
  Country: None (occurrence: None)
  Receive Date: 20060315
  Receipt Date: 20060203
  Transmission Date: 20060701
  Serious: Yes (Other)
  Sender: FDA-Public Use
  Company Number: 435295

PATIENT
  Age: 58 Year
  Sex: Female

DRUGS (9)
  1. BONIVA [Suspect]
     Indication: OSTEOPENIA
     Dosage: PER MONTH ORAL
     Route: 048
     Dates: start: 20051110
  2. LEXAPRO [Concomitant]
  3. ALTACE [Concomitant]
  4. ZOCOR [Concomitant]
  5. MULTIVITAMIN [Concomitant]
  6. FLONAS (FLUTICASONE PROPIONATE) [Concomitant]
  7. OMEGA-3 TRIGLYCERIDES (OMEGA-3 TRIGLYCERIDES) [Concomitant]
  8. GLUCOSAMINE (GLUCOSAMINE) [Concomitant]
  9. CELEBREX [Concomitant]

REACTIONS (4)
  - CONSTIPATION [None]
  - DIARRHOEA [None]
  - DYSPEPSIA [None]
  - ERUCTATION [None]
